FAERS Safety Report 20245426 (Version 5)
Quarter: 2022Q1

REPORT INFORMATION
  Report Type: Spontaneous
  Country: US (occurrence: US)
  Receive Date: 20211229
  Receipt Date: 20220317
  Transmission Date: 20220423
  Serious: Yes (Death)
  Sender: FDA-Public Use
  Company Number: US-GW PHARMA-202112USGW06358

PATIENT

DRUGS (5)
  1. EPIDIOLEX [Suspect]
     Active Substance: CANNABIDIOL
     Indication: Epilepsy
     Dosage: 6 MG/KG, 30 MILLIGRAM, BID
     Route: 048
     Dates: start: 20211123, end: 20211130
  2. EPIDIOLEX [Suspect]
     Active Substance: CANNABIDIOL
     Indication: Epilepsy
     Dosage: 11 MG/KG/DAY, 60 MILLIGRAM, BID
     Route: 048
     Dates: start: 20211201, end: 20211208
  3. EPIDIOLEX [Suspect]
     Active Substance: CANNABIDIOL
     Dosage: 16 MG/KG/DAY, 90 MILLIGRAM, BID
     Route: 048
     Dates: start: 20211209
  4. EPIDIOLEX [Suspect]
     Active Substance: CANNABIDIOL
     Dosage: 16 MG/KG, 180 MILLIGRAM
     Route: 048
     Dates: end: 20220120
  5. EPIDIOLEX [Suspect]
     Active Substance: CANNABIDIOL
     Dosage: 15.9 MG/KG/DAY, 90 MILLIGRAM, BID
     Route: 048
     Dates: start: 20211123

REACTIONS (5)
  - Road traffic accident [Fatal]
  - Brain injury [Fatal]
  - Brain death [Fatal]
  - COVID-19 [Unknown]
  - Product dose omission issue [Unknown]

NARRATIVE: CASE EVENT DATE: 20210101
